FAERS Safety Report 9896689 (Version 1)
Quarter: 2014Q1

REPORT INFORMATION
  Report Type: Spontaneous
  Country: US (occurrence: US)
  Receive Date: 20140213
  Receipt Date: 20140213
  Transmission Date: 20141002
  Serious: Yes (Other)
  Sender: FDA-Public Use
  Company Number: US-BRISTOL-MYERS SQUIBB COMPANY-18896092

PATIENT
  Age: 64 Year
  Sex: Female

DRUGS (2)
  1. ORENCIA FOR INJ [Suspect]
     Route: 042
  2. ABATACEPT SUBQ INJECTION 125MG/ML [Suspect]
     Dosage: LAST INJ:MAR2013
     Route: 058

REACTIONS (3)
  - Diverticulitis [Not Recovered/Not Resolved]
  - Drug ineffective [Unknown]
  - Urinary tract infection [Not Recovered/Not Resolved]
